FAERS Safety Report 10889304 (Version 1)
Quarter: 2015Q1

REPORT INFORMATION
  Report Type: Spontaneous
  Country: GB (occurrence: GB)
  Receive Date: 20150305
  Receipt Date: 20150305
  Transmission Date: 20150721
  Serious: Yes (Other)
  Sender: FDA-Public Use
  Company Number: GB-MYLANLABS-2015M1006696

PATIENT

DRUGS (1)
  1. PAROXETINE [Suspect]
     Active Substance: PAROXETINE\PAROXETINE HYDROCHLORIDE
     Dosage: 10-30MG
     Route: 065

REACTIONS (7)
  - Suicidal behaviour [Unknown]
  - Vertigo [Unknown]
  - Abnormal behaviour [Unknown]
  - Unevaluable event [Unknown]
  - Alcoholism [Unknown]
  - Loss of consciousness [Unknown]
  - Impulsive behaviour [Unknown]
